FAERS Safety Report 4811312-1 (Version None)
Quarter: 2005Q4

REPORT INFORMATION
  Report Type: 
  Country: None (occurrence: None)
  Receive Date: 20051026
  Receipt Date: 20051026
  Transmission Date: 20060501
  Serious: Yes (Life-Threatening, Hospitalization)
  Sender: FDA-Public Use
  Company Number: None

PATIENT
  Age: 29 Year
  Sex: Female
  Weight: 60.782 kg

DRUGS (1)
  1. ORTHO EVRA [Suspect]
     Indication: CONTRACEPTION
     Dosage: WEEKLY TRANSDERMAL
     Route: 062
     Dates: start: 20050601, end: 20050611

REACTIONS (7)
  - ANOREXIA [None]
  - BLOOD BILIRUBIN INCREASED [None]
  - FATIGUE [None]
  - JAUNDICE [None]
  - NAUSEA [None]
  - PROTEIN TOTAL INCREASED [None]
  - PRURITUS [None]
